FAERS Safety Report 9266577 (Version 1)
Quarter: 2013Q2

REPORT INFORMATION
  Report Type: Report from Study
  Country: GB (occurrence: GB)
  Receive Date: 20130502
  Receipt Date: 20130502
  Transmission Date: 20140414
  Serious: Yes (Hospitalization)
  Sender: FDA-Public Use
  Company Number: PHHO2013GB005716

PATIENT
  Sex: Male
  Weight: 64 kg

DRUGS (7)
  1. ZOLEDRONATE [Suspect]
     Indication: PROSTATE CANCER
     Dosage: 4 MG, UNK
     Route: 042
     Dates: start: 20120517, end: 20121129
  2. DOCETAXEL [Suspect]
     Indication: PROSTATE CANCER
     Dosage: 142 MG, UNK
     Dates: start: 20120517, end: 20120830
  3. DECAPEPTYL [Concomitant]
     Indication: PROSTATE CANCER
     Dosage: 11.25 MG, UNK
     Dates: start: 20120302
  4. RANITIDINE [Concomitant]
     Dosage: 300 MG, UNK
  5. SIMVASTATIN [Concomitant]
     Dosage: 400 MG, UNK
  6. TRAMADOL [Concomitant]
     Dosage: 100 MG, UNK
  7. MORPHINE [Concomitant]

REACTIONS (3)
  - Dehydration [Recovered/Resolved]
  - Confusional state [Recovered/Resolved]
  - Lethargy [Not Recovered/Not Resolved]
